FAERS Safety Report 7765721-1 (Version None)
Quarter: 2011Q3

REPORT INFORMATION
  Report Type: 
  Country: None (occurrence: None)
  Receive Date: 20110921
  Receipt Date: 20110912
  Transmission Date: 20111222
  Serious: Yes (Hospitalization)
  Sender: FDA-Public Use
  Company Number: PHHY2011US80978

PATIENT
  Age: 18 Year
  Sex: Female

DRUGS (5)
  1. ARIPIPRAZOLE [Concomitant]
     Indication: AFFECTIVE DISORDER
  2. LAMOTRIGINE [Suspect]
  3. BUPROPION HCL [Concomitant]
     Indication: AFFECTIVE DISORDER
  4. LOTEPREDNOL [Concomitant]
     Indication: EYE IRRITATION
  5. CYCLOSPORINE [Concomitant]
     Indication: EYE IRRITATION

REACTIONS (6)
  - STEVENS-JOHNSON SYNDROME [None]
  - SKIN HYPOPIGMENTATION [None]
  - SEBACEOUS GLAND DISORDER [None]
  - PAPULE [None]
  - SKIN PLAQUE [None]
  - ONYCHOLYSIS [None]
